FAERS Safety Report 7500280-X (Version None)
Quarter: 2011Q2

REPORT INFORMATION
  Report Type: 
  Country: None (occurrence: None)
  Receive Date: 20110524
  Receipt Date: 20100614
  Transmission Date: 20111010
  Serious: No
  Sender: FDA-Public Use
  Company Number: US-NOVEN-ALL1-2010-02752

PATIENT

DRUGS (4)
  1. PHENOBARBITAL TAB [Concomitant]
     Dosage: 45 MG, 1X/DAY:QD
  2. KEPRA [Concomitant]
     Dosage: 100 MG, 2X/DAY:BID
     Route: 048
     Dates: start: 20020101
  3. DAYTRANA [Suspect]
     Dosage: 10 MG, 1X/DAY:QD
     Route: 062
     Dates: start: 20100508
  4. DAYTRANA [Suspect]
     Dosage: UNK MG, 1X/DAY:QD ADMINISTERED ONE 10 MG AND ONE HALF OF A CUT 10 MG PATCH DAILY
     Route: 062
     Dates: start: 20100510

REACTIONS (3)
  - WRONG TECHNIQUE IN DRUG USAGE PROCESS [None]
  - DRUG INEFFECTIVE [None]
  - PRODUCT QUALITY ISSUE [None]
